FAERS Safety Report 9172213 (Version 2)
Quarter: 2013Q3

REPORT INFORMATION
  Report Type: Spontaneous
  Country: US (occurrence: US)
  Receive Date: 20130319
  Receipt Date: 20130822
  Transmission Date: 20140515
  Serious: Yes (Other)
  Sender: FDA-Public Use
  Company Number: US-UCBSA-080947

PATIENT
  Age: 28 Year
  Sex: Female
  Weight: 86.36 kg

DRUGS (7)
  1. KEPPRA [Suspect]
     Dosage: DOSE: 1250 MG (100 MG TABLET +250 MG TABLET) IN MORNING AND NIGHT
     Dates: start: 201302
  2. GENERIC KEPPRA [Suspect]
     Indication: CONVULSION
     Dosage: 250 MG IN THE MORNING AND 1000 MG IN THE EVENING
     Dates: start: 201106
  3. FOLIC ACID [Concomitant]
     Indication: HYPOVITAMINOSIS
     Dates: start: 2011
  4. PRISTIQ [Concomitant]
     Indication: DEPRESSION
     Dates: start: 1999
  5. LAMICTAL [Concomitant]
     Dosage: DOSE: 150 MG IN AM AND 100 MG IN PM
     Dates: start: 2012
  6. ATIVAN [Concomitant]
     Dates: start: 2011, end: 201302
  7. DEPAKOTE [Concomitant]
     Dates: start: 2000, end: 2013

REACTIONS (7)
  - Convulsion [Unknown]
  - Grand mal convulsion [Unknown]
  - Dyskinesia [Unknown]
  - Oxygen consumption decreased [Unknown]
  - Periorbital contusion [Unknown]
  - Premature delivery [Unknown]
  - Exposure during pregnancy [Recovered/Resolved]
